FAERS Safety Report 22674211 (Version 6)
Quarter: 2023Q4

REPORT INFORMATION
  Report Type: Spontaneous
  Country: NL (occurrence: NL)
  Receive Date: 20230705
  Receipt Date: 20231031
  Transmission Date: 20240110
  Serious: Yes (Other)
  Sender: FDA-Public Use
  Company Number: NL-OTSUKA-2023_015693

PATIENT
  Age: 9 Year
  Sex: Male

DRUGS (13)
  1. FLUTICASONE [Suspect]
     Active Substance: FLUTICASONE
     Indication: Asthma
     Dosage: 1 DOSAGE FORM
     Route: 045
     Dates: start: 20230320
  2. GRANISETRON [Suspect]
     Active Substance: GRANISETRON
     Indication: Nausea
     Dosage: 2 MG IF NECESSARY
     Route: 048
     Dates: start: 20230508
  3. ARIPIPRAZOLE [Suspect]
     Active Substance: ARIPIPRAZOLE
     Indication: Autism spectrum disorder
     Dosage: 2.5 MILLIGRAM
     Route: 048
     Dates: start: 20230331
  4. DESLORATADINE [Suspect]
     Active Substance: DESLORATADINE
     Indication: Asthma
     Dosage: 2.5 MG, PRN (IF NECESSARY)
     Route: 048
     Dates: start: 20230320
  5. BECLOMETHASONE DIPROPIONATE [Suspect]
     Active Substance: BECLOMETHASONE DIPROPIONATE
     Indication: Asthma
     Dosage: 2 DOSAGE FORM, BID
     Route: 055
     Dates: start: 20230320
  6. ALBUTEROL [Suspect]
     Active Substance: ALBUTEROL
     Indication: Asthma
     Dosage: UNK, PRN, 1-4 DOSE, 8X/DAY, IF NECESSARY
     Route: 055
     Dates: start: 20230320
  7. POLYETHYLENE GLYCOLS [Suspect]
     Active Substance: POLYETHYLENE GLYCOLS
     Indication: Constipation
     Dosage: 10- 20 G
     Route: 048
     Dates: start: 20230320
  8. MELATONIN [Suspect]
     Active Substance: MELATONIN
     Indication: Autism spectrum disorder
     Dosage: 0.5 MG
     Route: 048
     Dates: start: 20230320
  9. CRIZOTINIB [Suspect]
     Active Substance: CRIZOTINIB
     Indication: Neoplasm malignant
     Dosage: 220 MILLIGRAM, BID
     Route: 048
     Dates: start: 20230211, end: 20230523
  10. CRIZOTINIB [Suspect]
     Active Substance: CRIZOTINIB
     Dosage: 200 MILLIGRAM/SQ. METER
     Route: 048
  11. METOCLOPRAMIDE [Suspect]
     Active Substance: METOCLOPRAMIDE
     Indication: Nausea
     Dosage: 12 MG AS NEEDED (IF NECESSARY)
     Route: 048
     Dates: start: 20230301, end: 20230410
  12. CHOLECALCIFEROL [Suspect]
     Active Substance: CHOLECALCIFEROL
     Indication: Prophylaxis
     Dosage: 400 INTERNATIONAL UNIT
     Route: 048
     Dates: start: 20230320
  13. KLYSMA SORBIT [Concomitant]
     Indication: Constipation
     Dosage: UNK
     Route: 054
     Dates: start: 20230327

REACTIONS (6)
  - Sinus bradycardia [Not Recovered/Not Resolved]
  - Heart rate decreased [Unknown]
  - Electrocardiogram abnormal [Unknown]
  - Cyanosis [Unknown]
  - Product use in unapproved indication [Unknown]
  - Off label use [Unknown]

NARRATIVE: CASE EVENT DATE: 20230331
